FAERS Safety Report 6091243-2 (Version None)
Quarter: 2009Q1

REPORT INFORMATION
  Report Type: 
  Country: None (occurrence: None)
  Receive Date: 20090223
  Receipt Date: 20090211
  Transmission Date: 20090719
  Serious: Yes (Other)
  Sender: FDA-Public Use
  Company Number: 2009AL000964

PATIENT
  Age: 79 Year
  Sex: Male

DRUGS (1)
  1. LIDOCAINE HCL [Suspect]
     Dosage: 5 PCT;QD;TOP
     Route: 061
     Dates: start: 20081021, end: 20081107

REACTIONS (1)
  - RASH [None]
